FAERS Safety Report 4531650-X (Version None)
Quarter: 2004Q4

REPORT INFORMATION
  Report Type: 
  Country: None (occurrence: None)
  Receive Date: 20041220
  Receipt Date: 20041208
  Transmission Date: 20050328
  Serious: Yes (Death, Hospitalization)
  Sender: FDA-Public Use
  Company Number: 200414607FR

PATIENT
  Age: 74 Year
  Sex: Male

DRUGS (4)
  1. HYDROCORTISONE [Suspect]
     Indication: CROHN'S DISEASE
     Route: 048
  2. IMUREL [Suspect]
     Indication: CROHN'S DISEASE
     Route: 048
  3. LASILIX [Concomitant]
     Route: 048
  4. PREVISCAN [Concomitant]
     Route: 048
     Dates: start: 20021015

REACTIONS (6)
  - COLITIS [None]
  - INTESTINAL ISCHAEMIA [None]
  - MULTI-ORGAN FAILURE [None]
  - PERITONEAL HAEMORRHAGE [None]
  - POST PROCEDURAL COMPLICATION [None]
  - SEPTIC SHOCK [None]
